FAERS Safety Report 9267767 (Version 1)
Quarter: 2013Q2

REPORT INFORMATION
  Report Type: Spontaneous
  Country: US (occurrence: US)
  Receive Date: 20130502
  Receipt Date: 20130502
  Transmission Date: 20140414
  Serious: Yes (Hospitalization)
  Sender: FDA-Public Use
  Company Number: US-ALEXION-A201200953

PATIENT
  Age: 28 Year
  Sex: Female

DRUGS (27)
  1. SOLIRIS 300MG [Suspect]
     Indication: HAEMOLYTIC URAEMIC SYNDROME
     Dosage: 1200 MG, Q2W
     Route: 042
     Dates: start: 20120502
  2. SOLIRIS 300MG [Suspect]
     Dosage: 900 MG, QW
     Route: 042
     Dates: start: 20120411, end: 20120502
  3. ANTIHYPERTENSIVES [Concomitant]
     Indication: HYPERTENSION
     Dosage: UNK
     Route: 065
  4. LISINOPRIL [Concomitant]
     Indication: HYPERTENSION
     Dosage: 0-5 MG, QD DEPENDING ON BP
     Route: 048
  5. ENOXAPARIN SODIUM [Concomitant]
     Indication: HYPERTENSION
     Dosage: 60 MG, BID
     Route: 058
  6. WARFARIN SODIUM [Concomitant]
     Dosage: 5 MG, EXC. 2.5MG Q MON/FRI
  7. PANTOPRAZOLE SODIUM [Concomitant]
     Dosage: 40 MG, QD
     Route: 048
  8. TRICOR [Concomitant]
     Dosage: 48 MG, QD
     Route: 048
  9. ZOLPIDEM TARTRATE [Concomitant]
     Dosage: 5 MG, QHS PRN
  10. PHENERGAN [Concomitant]
     Dosage: 25 MG, Q 4 HRS PRN
     Route: 030
  11. DILAUDID [Concomitant]
     Dosage: 2 MG, Q 4 HRS PRN
     Route: 048
  12. LORAZEPAM [Concomitant]
     Dosage: 0.5 MG, QD PRN
     Route: 048
  13. ACETAMINOPHEN [Concomitant]
     Dosage: 480 MG, PRN
     Route: 048
  14. ASPIRIN [Concomitant]
     Dosage: 81 MG, QD
     Route: 048
  15. CARVEDILOL [Concomitant]
     Dosage: 25 MG, BID
     Route: 048
  16. DIPHENHYDRAMINE HYDROCHLORIDE [Concomitant]
     Indication: NAUSEA
     Dosage: 12.5 MG, QID
     Route: 048
  17. DIPHENHYDRAMINE HYDROCHLORIDE [Concomitant]
     Indication: VOMITING
  18. DOCUSATE SODIUM [Concomitant]
     Dosage: 100 MG, BID
     Route: 048
  19. FENOFIBRATE [Concomitant]
     Dosage: 145 MG, QD
     Route: 048
  20. HYDROXYZINE [Concomitant]
     Dosage: 25 MG, QID PRN
     Route: 048
  21. MIRTAZAPINE [Concomitant]
     Dosage: 30 MG, QHS
     Route: 048
  22. LORTAB [Concomitant]
     Dosage: 15 ML (7.5-500 MG/15 ML), Q 4-6 HRS PRN
  23. VITAMIN C [Concomitant]
     Dosage: 500 MG, QD
     Route: 048
  24. MULTIVITAMIN AND MINERAL [Concomitant]
     Dosage: UNK
     Route: 048
  25. IRON [Concomitant]
     Dosage: 15 MG/1.5ML, UNK
     Route: 048
  26. CLONIDINE [Concomitant]
     Dosage: 0.3 MG/24HR, WEEKLY
     Route: 062
  27. CIPRO [Suspect]
     Dosage: 500 MG/5ML, QD
     Route: 048

REACTIONS (2)
  - Cerebrovascular accident [Recovered/Resolved]
  - Cardiac failure congestive [Unknown]
